FAERS Safety Report 9300847 (Version 1)
Quarter: 2013Q2

REPORT INFORMATION
  Report Type: Spontaneous
  Country: IT (occurrence: IT)
  Receive Date: 20130521
  Receipt Date: 20130521
  Transmission Date: 20140414
  Serious: Yes (Hospitalization)
  Sender: FDA-Public Use
  Company Number: IT-TEVA-404653ISR

PATIENT
  Age: 63 Year
  Sex: Male
  Weight: 93 kg

DRUGS (8)
  1. FLUOROURACIL [Suspect]
     Indication: COLON CANCER
     Route: 042
     Dates: start: 20130325, end: 20130426
  2. FLUOROURACIL [Suspect]
     Route: 042
     Dates: start: 20130325, end: 20130326
  3. ALLOPURINOL [Suspect]
     Indication: HYPERURICAEMIA
     Dosage: 150 MILLIGRAM DAILY;
     Route: 048
     Dates: start: 20130215, end: 20130402
  4. ZARZIO [Suspect]
     Indication: BONE MARROW FAILURE
     Dosage: 300 MICROGRAM DAILY;
     Route: 058
     Dates: start: 20130330, end: 20130330
  5. OXALIPLATINO KABI [Suspect]
     Indication: COLON CANCER
     Route: 042
     Dates: start: 20130325, end: 20130325
  6. IOMERON [Suspect]
     Indication: COMPUTERISED TOMOGRAM ABDOMEN
     Dosage: 120 ML DAILY;
     Route: 042
     Dates: start: 20130322, end: 20130322
  7. KANRENOL [Concomitant]
     Indication: ASCITES
     Dosage: 100 MILLIGRAM DAILY;
     Route: 048
     Dates: start: 20100101, end: 20130402
  8. INDERAL [Concomitant]
     Indication: VARICES OESOPHAGEAL
     Dosage: 40 MILLIGRAM DAILY;
     Route: 048
     Dates: start: 20100101, end: 20130402

REACTIONS (1)
  - Erythema multiforme [Recovering/Resolving]
